FAERS Safety Report 17083557 (Version 1)
Quarter: 2019Q4

REPORT INFORMATION
  Report Type: Spontaneous
  Country: DE (occurrence: DE)
  Receive Date: 20191127
  Receipt Date: 20191127
  Transmission Date: 20200122
  Serious: Yes (Life-Threatening)
  Sender: FDA-Public Use
  Company Number: DE-ANIPHARMA-2019-DE-000163

PATIENT
  Age: 63 Year
  Sex: Male

DRUGS (1)
  1. CANDESARTAN CILEXETIL AND HYDROCHLOROTHIAZIDE [Suspect]
     Active Substance: CANDESARTAN CILEXETIL\HYDROCHLOROTHIAZIDE
     Indication: HYPERTENSION
     Dosage: 0 / 2 DF DAILY
     Route: 048
     Dates: start: 20190726, end: 20191007

REACTIONS (4)
  - Gamma-glutamyltransferase increased [Unknown]
  - C-reactive protein increased [Unknown]
  - Fatigue [Unknown]
  - Abdominal pain [Unknown]

NARRATIVE: CASE EVENT DATE: 20190729
